FAERS Safety Report 8142637-2 (Version None)
Quarter: 2012Q1

REPORT INFORMATION
  Report Type: 
  Country: None (occurrence: None)
  Receive Date: 20120216
  Receipt Date: 20120208
  Transmission Date: 20120608
  Serious: Yes (Hospitalization)
  Sender: FDA-Public Use
  Company Number: JP-ASTRAZENECA-2012SE09267

PATIENT

DRUGS (2)
  1. SOME DRUGS [Concomitant]
  2. OMEPRAZOLE [Suspect]
     Route: 048

REACTIONS (1)
  - BLOOD CHOLINESTERASE DECREASED [None]
